FAERS Safety Report 11820580 (Version 2)
Quarter: 2016Q1

REPORT INFORMATION
  Report Type: Spontaneous
  Country: DE (occurrence: DE)
  Receive Date: 20151210
  Receipt Date: 20160204
  Transmission Date: 20160525
  Serious: Yes (Other)
  Sender: FDA-Public Use
  Company Number: DE-WATSON-2015-27163

PATIENT
  Age: 43 Year
  Sex: Male
  Weight: 69 kg

DRUGS (9)
  1. AZATHIOPRINE (UNKNOWN) [Suspect]
     Active Substance: AZATHIOPRINE
     Indication: BEHCET^S SYNDROME
     Dosage: 100 MG, DAILY
     Route: 065
  2. ADALIMUMAB [Concomitant]
     Active Substance: ADALIMUMAB
     Indication: PRODUCT USED FOR UNKNOWN INDICATION
     Dosage: 160 MG/ 80MG (ANTI-TNF ALPHA ANTIBODY)
     Route: 065
  3. MESALAZINE [Concomitant]
     Active Substance: MESALAMINE
     Indication: PRODUCT USED FOR UNKNOWN INDICATION
     Dosage: UNK
     Route: 048
  4. TACROLIMUS (UNKNOWN) [Suspect]
     Active Substance: TACROLIMUS
     Dosage: 18 MG, DAILY
     Route: 065
  5. CICLOSPORIN [Concomitant]
     Active Substance: CYCLOSPORINE
     Indication: COLITIS ULCERATIVE
     Dosage: TARGET LEVEL 250-400 NG/ML
     Route: 042
  6. PREDNISOLONE. [Concomitant]
     Active Substance: PREDNISOLONE
     Indication: PRODUCT USED FOR UNKNOWN INDICATION
     Dosage: 50 MG, DAILY
     Route: 048
  7. TACROLIMUS (UNKNOWN) [Suspect]
     Active Substance: TACROLIMUS
     Indication: BEHCET^S SYNDROME
     Dosage: TARGET LEVEL 7-10 MCG/L
     Route: 048
  8. CICLOSPORIN [Concomitant]
     Active Substance: CYCLOSPORINE
     Indication: BEHCET^S SYNDROME
     Dosage: UNK
     Route: 051
  9. INFLIXIMAB [Concomitant]
     Active Substance: INFLIXIMAB
     Indication: PRODUCT USED FOR UNKNOWN INDICATION
     Dosage: ANTI-TNF ALPHA ANTIBODY
     Route: 065

REACTIONS (3)
  - Acute kidney injury [Unknown]
  - Mouth ulceration [Recovering/Resolving]
  - Condition aggravated [Recovering/Resolving]
